FAERS Safety Report 8537312 (Version 6)
Quarter: 2017Q4

REPORT INFORMATION
  Report Type: Spontaneous
  Country: JP (occurrence: JP)
  Receive Date: 20120430
  Receipt Date: 20171215
  Transmission Date: 20180321
  Serious: Yes (Other)
  Sender: FDA-Public Use
  Company Number: PHHY2012JP032601

PATIENT
  Age: 62 Year
  Sex: Male

DRUGS (2)
  1. NEORAL [Suspect]
     Active Substance: CYCLOSPORINE
     Indication: SYSTEMIC LUPUS ERYTHEMATOSUS
     Dosage: 3 MG/KG, QD
     Route: 048
  2. PREDNISOLONE. [Suspect]
     Active Substance: PREDNISOLONE
     Indication: SYSTEMIC LUPUS ERYTHEMATOSUS
     Dosage: 20 MG, QD
     Route: 048

REACTIONS (13)
  - Dermatitis exfoliative [Recovered/Resolved]
  - Nail disorder [Unknown]
  - Nail discolouration [Unknown]
  - Paraesthesia [Unknown]
  - Skin mass [Unknown]
  - Product use in unapproved indication [Unknown]
  - Onychomycosis [Unknown]
  - Purulent discharge [Unknown]
  - Skin exfoliation [Unknown]
  - Trichophytic granuloma [Recovered/Resolved]
  - Subcutaneous abscess [Unknown]
  - Pityriasis [Recovered/Resolved]
  - Body tinea [Unknown]
